FAERS Safety Report 7443684-6 (Version None)
Quarter: 2011Q2

REPORT INFORMATION
  Report Type: 
  Country: None (occurrence: None)
  Receive Date: 20110428
  Receipt Date: 20110425
  Transmission Date: 20111010
  Serious: Yes (Other)
  Sender: FDA-Public Use
  Company Number: US-PFIZER INC-2011089277

PATIENT
  Sex: Female

DRUGS (1)
  1. CELEBREX [Suspect]
     Indication: ARTHRITIS
     Dosage: 200 MG, 1X/DAY
     Dates: end: 20110101

REACTIONS (3)
  - DERMATITIS BULLOUS [None]
  - CYSTITIS HAEMORRHAGIC [None]
  - RASH ERYTHEMATOUS [None]
